FAERS Safety Report 6259072-4 (Version None)
Quarter: 2009Q3

REPORT INFORMATION
  Report Type: 
  Country: None (occurrence: None)
  Receive Date: 20090707
  Receipt Date: 20090625
  Transmission Date: 20100115
  Serious: Yes (Hospitalization)
  Sender: FDA-Public Use
  Company Number: FR-ELI_LILLY_AND_COMPANY-FR200906006951

PATIENT
  Age: 12 Year
  Sex: Male

DRUGS (1)
  1. UMATROPE [Suspect]
     Route: 058

REACTIONS (1)
  - OSTEOMYELITIS [None]
